FAERS Safety Report 13847493 (Version 2)
Quarter: 2017Q3

REPORT INFORMATION
  Report Type: Report from Study
  Country: US (occurrence: US)
  Receive Date: 20170808
  Receipt Date: 20170830
  Transmission Date: 20171127
  Serious: No
  Sender: FDA-Public Use
  Company Number: US-AMGEN-USASL2017114730

PATIENT
  Age: 50 Year
  Sex: Female

DRUGS (2)
  1. ENBREL [Suspect]
     Active Substance: ETANERCEPT
     Indication: PSORIATIC ARTHROPATHY
  2. ENBREL [Suspect]
     Active Substance: ETANERCEPT
     Indication: PSORIASIS
     Dosage: 50 MG, QWK
     Route: 058
     Dates: start: 20170602

REACTIONS (6)
  - Eyelid oedema [Recovered/Resolved]
  - Eye pruritus [Unknown]
  - Therapy non-responder [Unknown]
  - Rash [Recovered/Resolved]
  - Psoriasis [Unknown]
  - Eye pain [Unknown]

NARRATIVE: CASE EVENT DATE: 2017
